FAERS Safety Report 8695130 (Version 2)
Quarter: 2013Q4

REPORT INFORMATION
  Report Type: Spontaneous
  Country: US (occurrence: US)
  Receive Date: 20120731
  Receipt Date: 20131106
  Transmission Date: 20140711
  Serious: Yes (Other)
  Sender: FDA-Public Use
  Company Number: US-009507513-1207USA010580

PATIENT
  Sex: Female

DRUGS (5)
  1. ZOCOR [Suspect]
     Dosage: 5 MG, QD
     Route: 048
  2. AMLODIPINE BESYLATE [Suspect]
     Dosage: 10 MG, QD
     Route: 048
  3. MEDROL [Suspect]
     Dosage: UNK, QD
  4. LEVAQUIN [Suspect]
  5. XANAX [Concomitant]
     Dosage: 0.5 MG, QD

REACTIONS (7)
  - Arterial disorder [Unknown]
  - Urticaria [Unknown]
  - Feeling abnormal [Unknown]
  - Sensory disturbance [Unknown]
  - Palpitations [Unknown]
  - Hypertension [Unknown]
  - Drug ineffective [Unknown]
